FAERS Safety Report 22210293 (Version 3)
Quarter: 2023Q2

REPORT INFORMATION
  Report Type: Spontaneous
  Country: RU (occurrence: RU)
  Receive Date: 20230414
  Receipt Date: 20230421
  Transmission Date: 20230722
  Serious: Yes (Hospitalization, Other)
  Sender: FDA-Public Use
  Company Number: RU-LUPIN PHARMACEUTICALS INC.-2023-02809

PATIENT
  Age: 33 Year
  Sex: Male

DRUGS (10)
  1. RIFAMPIN [Suspect]
     Active Substance: RIFAMPIN
     Indication: Pulmonary tuberculosis
     Dosage: UNK, RECEIVED UNDER ANTI-TUBERCULOSIS CHEMOTHERAPY REGIMEN I
     Route: 065
  2. RIFAMPIN [Suspect]
     Active Substance: RIFAMPIN
     Dosage: UNK THERAPY DISCONTINUED AND LATER RE-INITIATED
     Route: 065
  3. ETHAMBUTOL [Suspect]
     Active Substance: ETHAMBUTOL HYDROCHLORIDE
     Indication: Pulmonary tuberculosis
     Dosage: UNK, RECEIVED UNDER ANTI-TUBERCULOSIS CHEMOTHERAPY REGIMEN I
     Route: 065
  4. ETHAMBUTOL [Suspect]
     Active Substance: ETHAMBUTOL HYDROCHLORIDE
     Dosage: UNK THERAPY DISCONTINUED AND LATER RE-INITIATED
     Route: 065
  5. PYRAZINAMIDE [Suspect]
     Active Substance: PYRAZINAMIDE
     Indication: Pulmonary tuberculosis
     Dosage: UNK, RECEIVED UNDER ANTI-TUBERCULOSIS CHEMOTHERAPY REGIMEN I
     Route: 065
  6. PYRAZINAMIDE [Suspect]
     Active Substance: PYRAZINAMIDE
     Dosage: UNK THERAPY DISCONTINUED AND LATER RE-INITIATED
     Route: 065
  7. ISONIAZID [Suspect]
     Active Substance: ISONIAZID
     Indication: Pulmonary tuberculosis
     Dosage: UNK, RECEIVED UNDER ANTI-TUBERCULOSIS CHEMOTHERAPY REGIMEN I
     Route: 065
  8. ISONIAZID [Suspect]
     Active Substance: ISONIAZID
     Dosage: UNK THERAPY DISCONTINUED AND LATER RE-INITIATED
     Route: 065
  9. RIFAMYCIN [Suspect]
     Active Substance: RIFAMYCIN
     Indication: Pulmonary tuberculosis
     Dosage: UNK, RECEIVED AT 10 MG/KG OF BODY WEIGHT UNDER ANTI-TUBERCULOSIS CHEMOTHERAPY REGIMEN I
     Route: 065
  10. RIFAMYCIN [Suspect]
     Active Substance: RIFAMYCIN
     Dosage: UNK THERAPY DISCONTINUED AND LATER RE-INITIATED
     Route: 065

REACTIONS (4)
  - Hepatotoxicity [Recovered/Resolved]
  - Pruritus [Recovering/Resolving]
  - Abdominal pain upper [Recovering/Resolving]
  - Blood cholesterol increased [Unknown]
